FAERS Safety Report 19311302 (Version 2)
Quarter: 2021Q2

REPORT INFORMATION
  Report Type: Spontaneous
  Country: ES (occurrence: ES)
  Receive Date: 20210527
  Receipt Date: 20210531
  Transmission Date: 20210717
  Serious: Yes (Hospitalization, Other)
  Sender: FDA-Public Use
  Company Number: ES-GLAXOSMITHKLINE-ESCH2021031331

PATIENT
  Age: 84 Year
  Sex: Female

DRUGS (10)
  1. OMEPRAZOLE RATIO [Concomitant]
     Indication: OSTEOARTHRITIS
     Dosage: 20 MG, BID(20 MG, Q12H)
     Route: 048
     Dates: start: 20171116
  2. PARACETAMOL [Concomitant]
     Active Substance: ACETAMINOPHEN
     Indication: OSTEOARTHRITIS
     Dosage: 1 G, TID(1 G, Q8H)
     Route: 048
     Dates: start: 20150707
  3. DICLOFENAC [Suspect]
     Active Substance: DICLOFENAC
     Indication: ARTHRALGIA
     Dosage: UNK
     Route: 065
     Dates: start: 20200226
  4. CALCIUMOSTEO D [Concomitant]
     Indication: SENILE OSTEOPOROSIS
     Dosage: 1 DF, QD(1 DF, Q24H (1000 MG/880 UI))
     Route: 048
     Dates: start: 20160906
  5. HIDROFEROL [Concomitant]
     Active Substance: CALCIFEDIOL
     Indication: SENILE OSTEOPOROSIS
     Dosage: 16000 IU, WE(16000 IU, QW)
     Route: 048
     Dates: start: 20150714
  6. CONDROSAN [Concomitant]
     Indication: BONE DISORDER
     Dosage: 800 MG, QD
     Route: 048
     Dates: start: 20180628
  7. SEVREDOL [Concomitant]
     Active Substance: MORPHINE
     Indication: ARTHRALGIA
     Dosage: 10 MG, 6D(10 MG, Q4H)
     Route: 048
     Dates: start: 20201221
  8. ENALAPRIL STADA [Concomitant]
     Active Substance: ENALAPRIL
     Indication: ESSENTIAL HYPERTENSION
     Dosage: 20 MG, QD(20 MG, Q24H)
     Route: 048
     Dates: start: 20070802
  9. KILOR [Concomitant]
     Active Substance: IRON
     Indication: ARTHRALGIA
     Dosage: 600 MG, QD(600 MG, Q24H)
     Route: 048
     Dates: start: 20191008
  10. GABAPENTIN. [Concomitant]
     Active Substance: GABAPENTIN
     Indication: ANXIETY
     Dosage: 300 MG, TID(300 MG, Q8H)
     Route: 048
     Dates: start: 20190920

REACTIONS (1)
  - Gastrointestinal haemorrhage [Recovered/Resolved]

NARRATIVE: CASE EVENT DATE: 20210125
